FAERS Safety Report 6618031-X (Version None)
Quarter: 2010Q1

REPORT INFORMATION
  Report Type: 
  Country: None (occurrence: None)
  Receive Date: 20100308
  Receipt Date: 20100225
  Transmission Date: 20100710
  Serious: Yes (Other)
  Sender: FDA-Public Use
  Company Number: US-AMGEN-QUU395600

PATIENT
  Sex: Male

DRUGS (4)
  1. NPLATE [Suspect]
     Indication: THROMBOCYTOPENIA
     Dates: start: 20100114, end: 20100218
  2. CORTICOSTEROIDS [Concomitant]
     Dates: start: 20090910
  3. IMMU-G [Concomitant]
     Route: 042
     Dates: start: 20090910
  4. WINRHO [Concomitant]
     Dates: start: 20090918

REACTIONS (2)
  - BACK PAIN [None]
  - THROMBOCYTOPENIA [None]
